FAERS Safety Report 24999391 (Version 1)
Quarter: 2025Q1

REPORT INFORMATION
  Report Type: Spontaneous
  Country: US (occurrence: US)
  Receive Date: 20250222
  Receipt Date: 20250222
  Transmission Date: 20250408
  Serious: No
  Sender: SANOFI AVENTIS
  Company Number: US-SA-2025SA044448

PATIENT
  Age: 35 Year
  Sex: Female
  Weight: 89.91 kg

DRUGS (4)
  1. DUPIXENT [Suspect]
     Active Substance: DUPILUMAB
     Indication: Dermatitis atopic
     Dosage: 300 MG, QOW
     Route: 058
     Dates: start: 2016
  2. TACROLIMUS [Concomitant]
     Active Substance: TACROLIMUS
  3. IRON [Concomitant]
     Active Substance: IRON
  4. CLARITIN-D 12 HOUR [Concomitant]
     Active Substance: LORATADINE\PSEUDOEPHEDRINE SULFATE

REACTIONS (7)
  - Injection site discolouration [Recovered/Resolved]
  - Skin haemorrhage [Recovered/Resolved]
  - Skin exfoliation [Recovered/Resolved]
  - Dermatitis atopic [Recovered/Resolved]
  - Pruritus [Recovered/Resolved]
  - Dry skin [Recovered/Resolved]
  - Skin fissures [Recovered/Resolved]
